FAERS Safety Report 17553028 (Version 3)
Quarter: 2020Q2

REPORT INFORMATION
  Report Type: Spontaneous
  Country: US (occurrence: US)
  Receive Date: 20200318
  Receipt Date: 20200408
  Transmission Date: 20200713
  Serious: Yes (Other)
  Sender: FDA-Public Use
  Company Number: NVSC2020US076572

PATIENT
  Sex: Female

DRUGS (2)
  1. PIQRAY [Suspect]
     Active Substance: ALPELISIB
     Indication: PRODUCT USED FOR UNKNOWN INDICATION
     Route: 048
  2. PIQRAY [Suspect]
     Active Substance: ALPELISIB
     Route: 048

REACTIONS (7)
  - Blood glucose increased [Unknown]
  - Diabetes mellitus [Unknown]
  - Diarrhoea [Recovered/Resolved with Sequelae]
  - Somnolence [Unknown]
  - Depression [Unknown]
  - Malaise [Unknown]
  - Weight decreased [Unknown]
